FAERS Safety Report 6272219-9 (Version None)
Quarter: 2009Q3

REPORT INFORMATION
  Report Type: 
  Country: None (occurrence: None)
  Receive Date: 20090715
  Receipt Date: 20090701
  Transmission Date: 20100115
  Serious: Yes (Death)
  Sender: FDA-Public Use
  Company Number: 2008AL012001

PATIENT
  Age: 71 Year
  Sex: Male

DRUGS (29)
  1. DIGOXIN [Suspect]
     Dosage: 0.125MG, DAILY, PO
     Route: 048
     Dates: start: 20080401
  2. XANAX [Concomitant]
  3. NORCO (1-2 TABS) [Concomitant]
  4. ASPIRIN [Concomitant]
  5. PLAVIX [Concomitant]
  6. DECADRON [Concomitant]
  7. CARDIZEM (120MG) [Concomitant]
  8. LASIX [Concomitant]
  9. LEVAQUIN [Concomitant]
  10. OXYCONTIN (30MG) [Concomitant]
  11. PROTONIX [Concomitant]
  12. EFFEXOR [Concomitant]
  13. COZAAR [Concomitant]
  14. LOPRESSOR (25MG) [Concomitant]
  15. LIPITOR [Concomitant]
  16. PROPOXYPHENE NAPSYLATE [Concomitant]
  17. ALPRAZOLAM [Concomitant]
  18. HYZAAR [Concomitant]
  19. MIRALAX (3350NF) [Concomitant]
  20. DOK (100MG) [Concomitant]
  21. ISOSORB (120MG) [Concomitant]
  22. SULFADIAZINE AND TRIMETHOPRIM (800-160) [Concomitant]
  23. HYOSCYAMINE (0.125MG) [Concomitant]
  24. TOPROL (100MG) [Concomitant]
  25. HYDROCODONE (10/325MG)` [Concomitant]
  26. CEPHALEXIN [Concomitant]
  27. VISICOL (1.5GM) [Concomitant]
  28. OXYBUTYNIN CHLORIDE [Concomitant]
  29. NITROSTAT [Concomitant]

REACTIONS (8)
  - ABDOMINAL PAIN [None]
  - BACK PAIN [None]
  - BALANCE DISORDER [None]
  - CARDIAC DISORDER [None]
  - MEMORY IMPAIRMENT [None]
  - MULTIPLE INJURIES [None]
  - PAIN [None]
  - PAIN IN EXTREMITY [None]
